FAERS Safety Report 15770710 (Version 1)
Quarter: 2018Q4

REPORT INFORMATION
  Report Type: Report from Study
  Country: US (occurrence: US)
  Receive Date: 20181228
  Receipt Date: 20181228
  Transmission Date: 20190205
  Serious: Yes (Other)
  Sender: FDA-Public Use
  Company Number: US-AMGEN INC.-USASL2018174863

PATIENT
  Age: 44 Year
  Sex: Female
  Weight: 134.69 kg

DRUGS (13)
  1. IBUPROFEN. [Concomitant]
     Active Substance: IBUPROFEN
     Dosage: 600 MG, UNK
     Route: 048
     Dates: start: 20180927
  2. OMEPRAZOLE. [Concomitant]
     Active Substance: OMEPRAZOLE
     Dosage: 40 MG, QD
     Route: 048
     Dates: start: 20160322
  3. SOMA [Concomitant]
     Active Substance: CARISOPRODOL
     Dosage: 350 MG, Q8H
     Route: 048
     Dates: start: 20180821
  4. AIMOVIG [Suspect]
     Active Substance: ERENUMAB-AOOE
     Indication: MIGRAINE
     Dosage: 140 MG, QMO
     Route: 058
     Dates: start: 20180927, end: 20181027
  5. BOTOX [Concomitant]
     Active Substance: ONABOTULINUMTOXINA
     Dosage: 200 UNIT, EVERY 12 WEEK
     Dates: start: 20180522
  6. PERCOCET [Concomitant]
     Active Substance: ACETAMINOPHEN\OXYCODONE HYDROCHLORIDE
     Dosage: 325-MG -10 MG, Q6H
     Dates: start: 20170224
  7. CLINDAMYCIN. [Concomitant]
     Active Substance: CLINDAMYCIN
     Dosage: 300 MG, UNK
     Route: 048
     Dates: start: 20180927
  8. COLACE [Concomitant]
     Active Substance: DOCUSATE SODIUM
     Dosage: UNK
     Dates: start: 20160322
  9. CHLORHEXIDINE [Concomitant]
     Active Substance: CHLORHEXIDINE
     Dosage: UNK (MUCOUS MEMBRANE)
     Route: 061
     Dates: start: 20180927
  10. LIDOCAINE/PRILOCAINE [Concomitant]
     Active Substance: LIDOCAINE\PRILOCAINE
     Dosage: UNK UNK, AS NECESSARY
     Route: 061
     Dates: start: 20150706
  11. LOSARTAN. [Concomitant]
     Active Substance: LOSARTAN
     Dosage: 25 MG, NIGHTLY
     Route: 048
     Dates: start: 20180409
  12. BELSOMRA [Concomitant]
     Active Substance: SUVOREXANT
     Dosage: 20 MG, QD AT BEDTIME
     Route: 048
     Dates: start: 20170224
  13. HYDROXYZINE [Concomitant]
     Active Substance: HYDROXYZINE HYDROCHLORIDE
     Dosage: 25 MG, 1-2 CAPSULES NIGHTLY
     Route: 048
     Dates: start: 20161202

REACTIONS (4)
  - Constipation [Not Recovered/Not Resolved]
  - Myalgia [Unknown]
  - Weight increased [Unknown]
  - Arthralgia [Not Recovered/Not Resolved]

NARRATIVE: CASE EVENT DATE: 2018
